FAERS Safety Report 4404434-0 (Version None)
Quarter: 2004Q3

REPORT INFORMATION
  Report Type: 
  Country: None (occurrence: None)
  Receive Date: 20040720
  Receipt Date: 20040707
  Transmission Date: 20050211
  Serious: Yes (Death, Other)
  Sender: FDA-Public Use
  Company Number: 2004046187

PATIENT
  Age: 27 Year
  Sex: Male

DRUGS (1)
  1. GEODON [Suspect]
     Indication: ILL-DEFINED DISORDER

REACTIONS (1)
  - CARDIO-RESPIRATORY ARREST [None]
